FAERS Safety Report 7539890-2 (Version None)
Quarter: 2011Q2

REPORT INFORMATION
  Report Type: 
  Country: None (occurrence: None)
  Receive Date: 20110610
  Receipt Date: 20110601
  Transmission Date: 20111010
  Serious: Yes (Death)
  Sender: FDA-Public Use
  Company Number: NO-PFIZER INC-2011113874

PATIENT
  Age: 8 Year
  Sex: Male

DRUGS (4)
  1. IFOSFAMIDE [Suspect]
     Indication: BONE SARCOMA
     Dosage: 2 G/M /DAY FOR 5 DAYS OF EACH CYCLE
     Route: 042
  2. DOXORUBICIN HCL [Suspect]
     Dosage: 75 MG/M (4-HOUR CONTINUOUS INFUSION), 2 CYCLES
     Route: 042
  3. METHOTREXATE SODIUM [Suspect]
     Indication: BONE SARCOMA
     Dosage: 12 G/M (4-HOUR INFUSION) 2 CYCLES
     Route: 042
  4. CISPLATIN [Suspect]
     Indication: BONE SARCOMA
     Dosage: 90 MG/M (48-HOUR CONTINUOUS INFUSION), 2 CYCLES
     Route: 042

REACTIONS (2)
  - FEBRILE NEUTROPENIA [None]
  - SEPTIC SHOCK [None]
